FAERS Safety Report 15725226 (Version 1)
Quarter: 2018Q4

REPORT INFORMATION
  Report Type: Spontaneous
  Country: IT (occurrence: IT)
  Receive Date: 20181215
  Receipt Date: 20181215
  Transmission Date: 20190205
  Serious: Yes (Other)
  Sender: FDA-Public Use
  Company Number: IT-TEVA-2018-IT-985987

PATIENT
  Age: 78 Year
  Sex: Male

DRUGS (4)
  1. PYRIDOSTIGMINE BROMIDE. [Concomitant]
     Active Substance: PYRIDOSTIGMINE BROMIDE
     Indication: MYASTHENIA GRAVIS
     Dosage: 120 MILLIGRAM DAILY;
     Route: 048
     Dates: start: 20180305, end: 20181122
  2. PREDNISONE. [Suspect]
     Active Substance: PREDNISONE
     Indication: MYASTHENIA GRAVIS
     Dosage: 25 MILLIGRAM DAILY;
     Route: 048
     Dates: start: 20180305, end: 20181122
  3. CARVEDILOL. [Concomitant]
     Active Substance: CARVEDILOL
     Indication: MYOCARDIAL ISCHAEMIA
     Dosage: 12.5 MILLIGRAM DAILY;
     Route: 048
     Dates: start: 20070101, end: 20181122
  4. AZATHIOPRINE. [Suspect]
     Active Substance: AZATHIOPRINE
     Indication: MYASTHENIA GRAVIS
     Dosage: 100 MILLIGRAM DAILY;
     Route: 065
     Dates: start: 20180313, end: 20180417

REACTIONS (1)
  - Leukopenia [Recovered/Resolved]

NARRATIVE: CASE EVENT DATE: 20180416
